FAERS Safety Report 6047649-0 (Version None)
Quarter: 2009Q1

REPORT INFORMATION
  Report Type: 
  Country: None (occurrence: None)
  Receive Date: 20090123
  Receipt Date: 20090116
  Transmission Date: 20090719
  Serious: Yes (Hospitalization)
  Sender: FDA-Public Use
  Company Number: DE-WYE-G02612708

PATIENT
  Sex: Female
  Weight: 74 kg

DRUGS (4)
  1. TAVOR [Interacting]
     Dosage: 2.5 MG PER DAY
     Route: 048
  2. ALCOHOL [Interacting]
     Dosage: MORE THAN ON OTHER DAYS
     Route: 048
     Dates: start: 20081101, end: 20081101
  3. RIFUN [Suspect]
     Indication: GASTRITIS
     Dosage: UNKNOWN
     Route: 048
  4. LUDIOMIL [Suspect]
     Indication: DEPRESSION
     Dosage: UNKNOWN
     Route: 048

REACTIONS (3)
  - DRUG DEPENDENCE [None]
  - DRUG INTERACTION [None]
  - DRUG LEVEL INCREASED [None]
